FAERS Safety Report 5028552-1 (Version None)
Quarter: 2006Q2

REPORT INFORMATION
  Report Type: 
  Country: None (occurrence: None)
  Receive Date: 20060615
  Receipt Date: 20060615
  Transmission Date: 20061013
  Serious: Yes (Other)
  Sender: FDA-Public Use
  Company Number: None

PATIENT
  Sex: Male
  Weight: 73.0291 kg

DRUGS (1)
  1. FUROSEMIDE [Suspect]
     Indication: RENAL SCAN
     Dosage: 36 MG IV
     Route: 042

REACTIONS (2)
  - INFUSION RELATED REACTION [None]
  - PRURITUS [None]
